FAERS Safety Report 6143819-1 (Version None)
Quarter: 2009Q2

REPORT INFORMATION
  Report Type: 
  Country: None (occurrence: None)
  Receive Date: 20090403
  Receipt Date: 20090331
  Transmission Date: 20091009
  Serious: Yes (Death, Hospitalization)
  Sender: FDA-Public Use
  Company Number: PHHY2008JP05266

PATIENT
  Age: 17 Year
  Sex: Female
  Weight: 33 kg

DRUGS (12)
  1. CERTICAN [Suspect]
     Indication: CYTOMEGALOVIRUS INFECTION
     Dosage: 0.75 MG, BID
     Route: 048
     Dates: start: 20071023, end: 20071031
  2. CERTICAN [Suspect]
     Indication: IDIOPATHIC THROMBOCYTOPENIC PURPURA
     Dosage: 1 MG/DAY
     Route: 048
     Dates: start: 20071101, end: 20071116
  3. CERTICAN [Suspect]
     Dosage: 0.75 MG/DAY
     Dates: start: 20071116, end: 20071120
  4. NEORAL [Suspect]
     Indication: IDIOPATHIC THROMBOCYTOPENIC PURPURA
     Dosage: 100 MG/DAY
     Route: 048
     Dates: start: 20020901, end: 20021001
  5. FOSCAVIR [Concomitant]
     Dosage: 3000 MG, QD
     Route: 042
     Dates: start: 20071023
  6. IMURAN [Concomitant]
     Dosage: 25 MG, QD
     Route: 048
     Dates: start: 20071023, end: 20071109
  7. PREDNISOLONE [Concomitant]
     Dosage: 6 MG
     Route: 048
     Dates: start: 20071023
  8. PREDNISOLONE [Concomitant]
     Dosage: 6 MG
     Route: 042
  9. PREDNISOLONE [Concomitant]
     Dosage: 10 MG
     Route: 042
  10. PREDNISOLONE [Concomitant]
     Dosage: 7 MG
     Route: 042
     Dates: end: 20071120
  11. AZATHIOPRINE [Concomitant]
     Indication: IDIOPATHIC THROMBOCYTOPENIC PURPURA
     Dosage: UNK
     Dates: start: 20051001
  12. MESALAZINE [Concomitant]
     Indication: IDIOPATHIC THROMBOCYTOPENIC PURPURA
     Dosage: UNK

REACTIONS (34)
  - ALANINE AMINOTRANSFERASE INCREASED [None]
  - ASPARTATE AMINOTRANSFERASE INCREASED [None]
  - BLOOD ALBUMIN DECREASED [None]
  - BLOOD ALKALINE PHOSPHATASE INCREASED [None]
  - BLOOD BILIRUBIN INCREASED [None]
  - BLOOD CHOLESTEROL DECREASED [None]
  - BLOOD CREATINE PHOSPHOKINASE DECREASED [None]
  - BLOOD CREATININE DECREASED [None]
  - BLOOD LACTATE DEHYDROGENASE INCREASED [None]
  - BLOOD TRIGLYCERIDES INCREASED [None]
  - BLOOD UREA DECREASED [None]
  - BRAIN STEM SYNDROME [None]
  - CONVULSION [None]
  - CSF CELL COUNT INCREASED [None]
  - CYTOMEGALOVIRUS ENTEROCOLITIS [None]
  - DEPRESSED LEVEL OF CONSCIOUSNESS [None]
  - DISEASE RECURRENCE [None]
  - ENCEPHALITIS CYTOMEGALOVIRUS [None]
  - GAMMA-GLUTAMYLTRANSFERASE INCREASED [None]
  - HAEMATOCRIT DECREASED [None]
  - HAEMOGLOBIN DECREASED [None]
  - HEADACHE [None]
  - HYPOPHAGIA [None]
  - LYMPHOCYTE COUNT DECREASED [None]
  - MELAENA [None]
  - MONOCYTE COUNT DECREASED [None]
  - NEUTROPHIL COUNT INCREASED [None]
  - PLATELET COUNT DECREASED [None]
  - PYREXIA [None]
  - RED BLOOD CELL COUNT DECREASED [None]
  - RESPIRATORY FAILURE [None]
  - RESTLESSNESS [None]
  - TREMOR [None]
  - WHITE BLOOD CELL COUNT INCREASED [None]
